FAERS Safety Report 7780949-2 (Version None)
Quarter: 2011Q3

REPORT INFORMATION
  Report Type: 
  Country: None (occurrence: None)
  Receive Date: 20110923
  Receipt Date: 20110912
  Transmission Date: 20111222
  Serious: Yes (Other)
  Sender: FDA-Public Use
  Company Number: THQ2009A02143

PATIENT
  Age: 32 Year
  Sex: Female

DRUGS (6)
  1. PIOGLITAZONE HYDROCHLORIDE [Suspect]
     Indication: TYPE 2 DIABETES MELLITUS
     Dosage: 15 MG (1 D) 30 MG (1 D) 45 MG (1 D)
     Route: 048
     Dates: start: 20080727, end: 20080831
  2. PIOGLITAZONE HYDROCHLORIDE [Suspect]
     Indication: TYPE 2 DIABETES MELLITUS
     Dosage: 15 MG (1 D) 30 MG (1 D) 45 MG (1 D)
     Route: 048
     Dates: start: 20080901, end: 20080902
  3. PIOGLITAZONE HYDROCHLORIDE [Suspect]
     Indication: TYPE 2 DIABETES MELLITUS
     Dosage: 15 MG (1 D) 30 MG (1 D) 45 MG (1 D)
     Route: 048
     Dates: start: 20080615, end: 20080726
  4. PLACEBO [Suspect]
     Indication: TYPE 2 DIABETES MELLITUS
     Dosage: 1 TAB (1 D)
     Route: 048
     Dates: start: 20080615, end: 20080831
  5. PLACEBO [Suspect]
     Indication: TYPE 2 DIABETES MELLITUS
     Dosage: 1 TAB (1 D)
     Route: 048
     Dates: start: 20080901, end: 20080910
  6. PLACEBO [Suspect]
     Indication: TYPE 2 DIABETES MELLITUS
     Dosage: 1 TAB ( 1 D ) ORAL
     Route: 048
     Dates: start: 20080601, end: 20080614

REACTIONS (4)
  - ABORTION SPONTANEOUS [None]
  - BLOOD GLUCOSE INCREASED [None]
  - PREGNANCY WITH CONTRACEPTIVE DEVICE [None]
  - MATERNAL EXPOSURE DURING PREGNANCY [None]
